FAERS Safety Report 7050163-7 (Version None)
Quarter: 2010Q4

REPORT INFORMATION
  Report Type: 
  Country: None (occurrence: None)
  Receive Date: 20101018
  Receipt Date: 20101006
  Transmission Date: 20110411
  Serious: Yes (Hospitalization, Other)
  Sender: FDA-Public Use
  Company Number: US-ELI_LILLY_AND_COMPANY-US201010001706

PATIENT
  Sex: Female

DRUGS (7)
  1. ADCIRCA [Suspect]
     Indication: PULMONARY HYPERTENSION
  2. LASIX [Concomitant]
  3. AMIODARONE HCL [Concomitant]
  4. BUSPAR [Concomitant]
  5. DEPAKOTE [Concomitant]
  6. ZOCOR [Concomitant]
  7. PRILOSEC [Concomitant]

REACTIONS (4)
  - HEART VALVE REPLACEMENT [None]
  - HYPOTENSION [None]
  - LOSS OF CONSCIOUSNESS [None]
  - UNRESPONSIVE TO STIMULI [None]
